FAERS Safety Report 5757961-8 (Version None)
Quarter: 2008Q2

REPORT INFORMATION
  Report Type: 
  Country: None (occurrence: None)
  Receive Date: 20080530
  Receipt Date: 20080514
  Transmission Date: 20081010
  Serious: Yes (Hospitalization)
  Sender: FDA-Public Use
  Company Number: 8032680

PATIENT
  Age: 12 Year
  Sex: Male

DRUGS (3)
  1. KEPPRA [Suspect]
  2. TOPAMAX [Concomitant]
  3. REGLAN [Concomitant]

REACTIONS (1)
  - TARDIVE DYSKINESIA [None]
